FAERS Safety Report 16100714 (Version 1)
Quarter: 2019Q1

REPORT INFORMATION
  Report Type: Spontaneous
  Country: US (occurrence: US)
  Receive Date: 20190321
  Receipt Date: 20190321
  Transmission Date: 20190418
  Serious: Yes (Other)
  Sender: FDA-Public Use
  Company Number: US-SEATTLE GENETICS-2019SGN00703

PATIENT
  Age: 53 Year
  Sex: Male

DRUGS (1)
  1. ADCETRIS [Suspect]
     Active Substance: BRENTUXIMAB VEDOTIN
     Indication: PRIMARY EFFUSION LYMPHOMA
     Dosage: 1.8 MG/KG, Q3WEEKS
     Route: 042

REACTIONS (4)
  - Thrombocytopenia [Recovered/Resolved]
  - Pancytopenia [Unknown]
  - Abdominal discomfort [Recovered/Resolved]
  - Neutropenia [Recovered/Resolved]
